FAERS Safety Report 7442508-0 (Version None)
Quarter: 2011Q2

REPORT INFORMATION
  Report Type: 
  Country: None (occurrence: None)
  Receive Date: 20110428
  Receipt Date: 20110414
  Transmission Date: 20111010
  Serious: Yes (Hospitalization)
  Sender: FDA-Public Use
  Company Number: FR-ASTRAZENECA-2011SE19413

PATIENT
  Age: 28895 Day
  Sex: Male

DRUGS (14)
  1. MIRTAZAPINE [Suspect]
     Route: 048
     Dates: end: 20101001
  2. PRAVASTATIN SODIUM [Suspect]
     Route: 048
  3. FUROSEMIDE [Suspect]
     Route: 048
  4. BROMAZEPAM [Suspect]
     Route: 048
  5. FORLAX [Suspect]
     Route: 048
  6. SYMBICORT [Suspect]
     Dosage: 320/9 UG PER DOSE, ONE INHALATION TWICE PER DAY
     Route: 055
  7. MICARDIS [Suspect]
     Route: 048
     Dates: start: 20021029, end: 20101029
  8. KARDEGIC [Suspect]
  9. PLAVIX [Suspect]
     Route: 048
  10. LEVOTHYROX [Suspect]
     Route: 048
  11. OMEPRAZOLE [Suspect]
     Route: 048
  12. BUDESONIDE [Suspect]
     Dosage: 2 X 400/12 MCG
     Route: 055
  13. AMIODARONE [Suspect]
     Dosage: ONE TABLET FIVE DAYS PER WEEK
     Route: 048
  14. PERMIXON [Suspect]
     Route: 048

REACTIONS (2)
  - NIGHT SWEATS [None]
  - HYPERHIDROSIS [None]
